FAERS Safety Report 9312316 (Version 2)
Quarter: 2013Q3

REPORT INFORMATION
  Report Type: Spontaneous
  Country: US (occurrence: US)
  Receive Date: 20130528
  Receipt Date: 20130902
  Transmission Date: 20140515
  Serious: Yes (Death, Hospitalization)
  Sender: FDA-Public Use
  Company Number: US-PFIZER INC-2013162334

PATIENT
  Age: 55 Year
  Sex: Female

DRUGS (7)
  1. INLYTA [Suspect]
     Indication: HEPATIC CANCER
     Dosage: 5 MG, 2X/DAY
     Route: 048
     Dates: start: 20121219, end: 20130328
  2. INLYTA [Suspect]
     Indication: RENAL CELL CARCINOMA
     Dosage: 5 MG, 2X/DAY
     Route: 048
     Dates: start: 20121213
  3. INLYTA [Suspect]
     Dosage: 7 MG, 2X/DAY
  4. INLYTA [Suspect]
     Dosage: 5 MG, 2X/DAY
     Dates: end: 201304
  5. TRAMADOL [Concomitant]
     Indication: PAIN
     Dosage: 50 MG, 3X/DAY (AS NEEDED)
  6. FOLIC ACID [Concomitant]
     Indication: BLOOD FOLATE DECREASED
     Dosage: 1 MG, 1X/DAY
     Dates: start: 20130320
  7. CITALOPRAM [Concomitant]
     Dosage: 20 MG, 1X/DAY

REACTIONS (2)
  - Disease progression [Fatal]
  - Renal cell carcinoma [Fatal]
